FAERS Safety Report 4430820-9 (Version None)
Quarter: 2004Q3

REPORT INFORMATION
  Report Type: 
  Country: None (occurrence: None)
  Receive Date: 20040823
  Receipt Date: 20040812
  Transmission Date: 20050211
  Serious: Yes (Hospitalization, Disabling, Other)
  Sender: FDA-Public Use
  Company Number: CH-BRISTOL-MYERS SQUIBB COMPANY-12670501

PATIENT
  Age: 43 Year
  Sex: Male

DRUGS (2)
  1. METHOTREXATE [Suspect]
     Indication: LYMPHOMA
     Route: 037
     Dates: start: 20031030, end: 20040213
  2. NEURONTIN [Suspect]
     Indication: NEUROPATHIC PAIN
     Route: 048
     Dates: start: 20040719, end: 20040723

REACTIONS (3)
  - DIZZINESS [None]
  - NYSTAGMUS [None]
  - PAIN [None]
